FAERS Safety Report 6963643-7 (Version None)
Quarter: 2010Q3

REPORT INFORMATION
  Report Type: 
  Country: None (occurrence: None)
  Receive Date: 20100902
  Receipt Date: 20100824
  Transmission Date: 20110219
  Serious: Yes (Hospitalization, Other)
  Sender: FDA-Public Use
  Company Number: US-PERRIGO-10US012486

PATIENT
  Sex: Male
  Weight: 89.796 kg

DRUGS (7)
  1. DIBROMM DM PE GRP LIQ 987 [Suspect]
     Indication: SEASONAL ALLERGY
     Dosage: 4 TEASPOONS, BID
     Route: 048
     Dates: start: 20100803
  2. DIBROMM DM PE GRP LIQ 987 [Suspect]
     Indication: SINUS CONGESTION
  3. DIBROMM DM PE GRP LIQ 987 [Suspect]
     Indication: RHINORRHOEA
  4. KEPPRA [Suspect]
     Indication: CONVULSION
     Dosage: 250 MG, BID
     Route: 048
     Dates: start: 20100803
  5. DEPAKOTE [Concomitant]
     Indication: ELECTROLYTE IMBALANCE
     Dosage: 500 MG, TID
     Route: 048
     Dates: start: 20050101
  6. ALLERGY RELIEF MEDICINE [Concomitant]
     Indication: HYPERSENSITIVITY
     Dosage: UNK
     Route: 048
  7. DETROL [Concomitant]
     Indication: URINARY INCONTINENCE
     Dosage: 4 MG, BID
     Route: 048
     Dates: start: 20060101

REACTIONS (6)
  - CEREBROVASCULAR ACCIDENT [None]
  - DRUG INEFFECTIVE [None]
  - DYSARTHRIA [None]
  - GAIT DISTURBANCE [None]
  - INCORRECT DRUG ADMINISTRATION DURATION [None]
  - TREMOR [None]
